FAERS Safety Report 4971250-0 (Version None)
Quarter: 2006Q2

REPORT INFORMATION
  Report Type: 
  Country: None (occurrence: None)
  Receive Date: 20060413
  Receipt Date: 20060309
  Transmission Date: 20061013
  Serious: No
  Sender: FDA-Public Use
  Company Number: US-MERCK-0603USA01611

PATIENT
  Age: 77 Year
  Sex: Male
  Weight: 122 kg

DRUGS (4)
  1. COZAAR [Suspect]
     Indication: HYPERTENSION
     Route: 048
     Dates: start: 20051101, end: 20060123
  2. ATENOLOL [Concomitant]
     Route: 065
     Dates: start: 20051101, end: 20060209
  3. ATENOLOL [Concomitant]
     Route: 048
     Dates: start: 20060209
  4. ASPIRIN [Concomitant]
     Route: 048

REACTIONS (9)
  - CONFUSIONAL STATE [None]
  - COUGH [None]
  - DECREASED ACTIVITY [None]
  - DEMENTIA [None]
  - FATIGUE [None]
  - HYPONATRAEMIA [None]
  - MEMORY IMPAIRMENT [None]
  - PAIN IN EXTREMITY [None]
  - SOMNOLENCE [None]
